FAERS Safety Report 26050745 (Version 1)
Quarter: 2025Q4

REPORT INFORMATION
  Report Type: Spontaneous
  Country: CN (occurrence: CN)
  Receive Date: 20251116
  Receipt Date: 20251116
  Transmission Date: 20260117
  Serious: Yes (Hospitalization, Disabling)
  Sender: BEIGENE
  Company Number: CN-BEIGENE-BGN-2025-019626

PATIENT
  Age: 62 Year
  Weight: 66 kg

DRUGS (6)
  1. TISLELIZUMAB [Suspect]
     Active Substance: TISLELIZUMAB
     Indication: Hepatocellular carcinoma
     Dosage: 200 MILLIGRAM, Q3WK
  2. TISLELIZUMAB [Suspect]
     Active Substance: TISLELIZUMAB
     Dosage: 200 MILLIGRAM, Q3WK
     Route: 041
  3. TISLELIZUMAB [Suspect]
     Active Substance: TISLELIZUMAB
     Dosage: 200 MILLIGRAM, Q3WK
     Route: 041
  4. TISLELIZUMAB [Suspect]
     Active Substance: TISLELIZUMAB
     Dosage: 200 MILLIGRAM, Q3WK
  5. IPILIMUMAB [Suspect]
     Active Substance: IPILIMUMAB
     Indication: Hepatocellular carcinoma
     Dosage: 50 MILLIGRAM, Q3WK
     Route: 041
  6. IPILIMUMAB [Suspect]
     Active Substance: IPILIMUMAB
     Dosage: 50 MILLIGRAM, Q3WK

REACTIONS (1)
  - Pemphigoid [Recovering/Resolving]
